FAERS Safety Report 8903350 (Version 2)
Quarter: 2012Q4

REPORT INFORMATION
  Report Type: 
  Country: US (occurrence: US)
  Receive Date: 20121113
  Receipt Date: 20121128
  Transmission Date: 20130627
  Serious: Yes (Hospitalization)
  Sender: FDA-Public Use
  Company Number: US-PERRIGO-12US009568

PATIENT
  Age: 74 Year
  Sex: Female
  Weight: 90.7 kg

DRUGS (3)
  1. POLYETHYLENE GLYCOL 3350 [Suspect]
     Indication: CONSTIPATION
     Dosage: 17 g, qd prn
     Route: 048
     Dates: start: 2012, end: 20120916
  2. DRUGS USED IN DIABETES [Concomitant]
     Indication: DIABETES MELLITUS
     Dosage: Unknown, Unknown
     Route: 065
  3. ANTIHYPERTENSIVES [Concomitant]
     Indication: HYPERTENSION
     Dosage: Unknown, Unknown
     Route: 065

REACTIONS (1)
  - Blood pressure increased [Recovered/Resolved]
